FAERS Safety Report 5981599-0 (Version None)
Quarter: 2008Q4

REPORT INFORMATION
  Report Type: 
  Country: None (occurrence: None)
  Receive Date: 20081205
  Receipt Date: 20081126
  Transmission Date: 20090506
  Serious: Yes (Disabling)
  Sender: FDA-Public Use
  Company Number: AU-ABBOTT-08P-008-0489977-00

PATIENT
  Sex: Female

DRUGS (6)
  1. EPILIM [Suspect]
     Indication: EPILEPSY
     Route: 048
  2. EPILIM [Suspect]
     Route: 048
  3. PHENYTOIN [Concomitant]
     Indication: EPILEPSY
     Route: 048
  4. CITALOPRAM HYDROBROMIDE [Concomitant]
     Indication: DEPRESSION
     Route: 048
  5. MELOXICAM [Concomitant]
     Indication: OSTEOARTHRITIS
     Route: 048
  6. ALENDRONATE SODIUM [Concomitant]
     Indication: DRUG USE FOR UNKNOWN INDICATION
     Route: 048

REACTIONS (5)
  - BLOOD CREATINE PHOSPHOKINASE INCREASED [None]
  - DRUG WITHDRAWAL CONVULSIONS [None]
  - MUSCLE ATROPHY [None]
  - MYOPATHY [None]
  - PARAESTHESIA [None]
